FAERS Safety Report 8811422 (Version 1)
Quarter: 2012Q4

REPORT INFORMATION
  Report Type: Spontaneous
  Country: US (occurrence: None)
  Receive Date: 20120925
  Receipt Date: 20120925
  Transmission Date: 20130627
  Serious: No
  Sender: FDA-Public Use
  Company Number: None

PATIENT
  Age: 9 Year
  Sex: Female
  Weight: 24.95 kg

DRUGS (1)
  1. CONCERTA [Suspect]
     Indication: ADHD
     Dates: start: 20120825, end: 20120919

REACTIONS (5)
  - Muscle twitching [None]
  - Excessive eye blinking [None]
  - Rhinorrhoea [None]
  - Tic [None]
  - Unevaluable event [None]
